FAERS Safety Report 16346818 (Version 1)
Quarter: 2019Q2

REPORT INFORMATION
  Report Type: Spontaneous
  Country: CN (occurrence: CN)
  Receive Date: 20190523
  Receipt Date: 20190523
  Transmission Date: 20190711
  Serious: Yes (Other)
  Sender: FDA-Public Use
  Company Number: CN-PFIZER INC-2019209969

PATIENT
  Age: 20 Month
  Sex: Male
  Weight: 10 kg

DRUGS (2)
  1. GLUCOSE INJECTION [Concomitant]
     Active Substance: DEXTROSE
     Indication: VEHICLE SOLUTION USE
     Dosage: 20 ML, 2X/DAY
     Route: 041
     Dates: start: 20190501, end: 20190501
  2. METHYLPREDNISOLONE SODIUM SUCCINATE. [Suspect]
     Active Substance: METHYLPREDNISOLONE SODIUM SUCCINATE
     Indication: ASTHMA
     Dosage: 20 MG, 2X/DAY
     Route: 041
     Dates: start: 20190501, end: 20190501

REACTIONS (3)
  - Pruritus [Unknown]
  - Mental impairment [Unknown]
  - Urticaria [Recovering/Resolving]

NARRATIVE: CASE EVENT DATE: 20190501
